FAERS Safety Report 22244218 (Version 1)
Quarter: 2023Q2

REPORT INFORMATION
  Report Type: Report from Study
  Country: DE (occurrence: DE)
  Receive Date: 20230424
  Receipt Date: 20230424
  Transmission Date: 20230722
  Serious: Yes (Hospitalization)
  Sender: FDA-Public Use
  Company Number: DE-ABBVIE-4737454

PATIENT
  Age: 58 Year
  Sex: Female

DRUGS (5)
  1. HUMIRA [Suspect]
     Active Substance: ADALIMUMAB
     Indication: Rheumatoid arthritis
     Route: 058
     Dates: start: 201710, end: 201804
  2. METHOTREXATE SODIUM [Concomitant]
     Active Substance: METHOTREXATE SODIUM
     Indication: Product used for unknown indication
     Dosage: START DATE TEXT: BEFORE 12OCT2012?STOP DATE TEXT: BETWEEN15APR2014 AND01OCT2014
     Route: 058
  3. METHOTREXATE SODIUM [Concomitant]
     Active Substance: METHOTREXATE SODIUM
     Indication: Product used for unknown indication
     Dosage: START DATE TEXT: BETWEEN15APR2014 AND01OCT2014? STOP DATE TEXT: BETWEEN 22OCT2015 AND21APR2016
     Route: 058
  4. METHOTREXATE SODIUM [Concomitant]
     Active Substance: METHOTREXATE SODIUM
     Indication: Product used for unknown indication
     Dosage: START DATE TEXT: BETWEEN 22OCT2015 AND21APR2016? STOP DATE TEXT: BETWEEN27OCT2016 AND25APR2017
     Route: 058
  5. METHOTREXATE SODIUM [Concomitant]
     Active Substance: METHOTREXATE SODIUM
     Indication: Product used for unknown indication
     Dosage: START DATE TEXT: BETWEEN 25APR2017 AND26OCT2017? STOP DATE TEXT: BETWEEN 30APR2018 AND19OCT2018
     Route: 058

REACTIONS (1)
  - Intestinal haemorrhage [Recovered/Resolved]

NARRATIVE: CASE EVENT DATE: 20211226
